FAERS Safety Report 13294390 (Version 1)
Quarter: 2017Q1

REPORT INFORMATION
  Report Type: Spontaneous
  Country: US (occurrence: US)
  Receive Date: 20170303
  Receipt Date: 20170303
  Transmission Date: 20170428
  Serious: Yes (Hospitalization)
  Sender: FDA-Public Use
  Company Number: US-PFIZER INC-2017072235

PATIENT
  Age: 72 Year
  Sex: Female
  Weight: 101.1 kg

DRUGS (20)
  1. EFFEXOR XR [Suspect]
     Active Substance: VENLAFAXINE HYDROCHLORIDE
     Indication: BIPOLAR DISORDER
  2. ATENOLOL. [Concomitant]
     Active Substance: ATENOLOL
     Indication: VENTRICULAR EXTRASYSTOLES
     Dosage: 50 MG, 1X/DAY
     Route: 048
  3. ATENOLOL. [Concomitant]
     Active Substance: ATENOLOL
     Indication: HEART RATE IRREGULAR
  4. HUMALOG [Concomitant]
     Active Substance: INSULIN LISPRO
     Indication: DIABETES MELLITUS
     Dosage: UNK, AS NEEDED (SLIDING SCALE)
  5. FLECAINIDE [Concomitant]
     Active Substance: FLECAINIDE
     Indication: HEART RATE IRREGULAR
     Dosage: 200 MG, 1X/DAY
  6. POTASSIUM [Concomitant]
     Active Substance: POTASSIUM
     Dosage: 10 MEQ, AS NEEDED (TAKES WHEN USES LASIX)
  7. ATORVASTATIN [Concomitant]
     Active Substance: ATORVASTATIN
     Indication: BLOOD CHOLESTEROL
     Dosage: 20 MG, 1X/DAY
  8. MONTELUKAST [Concomitant]
     Active Substance: MONTELUKAST SODIUM
     Indication: RESPIRATORY DISORDER
     Dosage: 10 MG, 1X/DAY
  9. HYDROCODONE [Concomitant]
     Active Substance: HYDROCODONE
     Indication: PAIN
     Dosage: 1 DF, AS NEEDED  (^10/3.25 MG^, ONE EVERY 4 TO 6 HOURS)
     Dates: start: 1983
  10. PANTOPRAZOLE SODIUM. [Concomitant]
     Active Substance: PANTOPRAZOLE SODIUM
     Indication: GASTROINTESTINAL DISORDER
     Dosage: 40 MG, 1X/DAY
  11. PRIMIDONE. [Concomitant]
     Active Substance: PRIMIDONE
     Indication: TREMOR
     Dosage: 250 MG, 2X/DAY
     Dates: start: 2015
  12. LEVEMIR [Concomitant]
     Active Substance: INSULIN DETEMIR
     Indication: DIABETES MELLITUS
     Dosage: 15 IU, 1X/DAY (INJECTED)
  13. ALVESCO [Concomitant]
     Active Substance: CICLESONIDE
     Indication: RESPIRATORY DISORDER
     Dosage: 2 DF, DAILY (80 MCG, 2 PUFFS DAILY)
  14. LEVALBUTEROL. [Concomitant]
     Active Substance: LEVALBUTEROL
     Indication: DYSPNOEA
     Dosage: 1.25 MG, 3X/DAY
  15. LASIX [Concomitant]
     Active Substance: FUROSEMIDE
     Indication: FLUID RETENTION
     Dosage: 40 MG, AS NEEDED
  16. ATORVASTATIN [Concomitant]
     Active Substance: ATORVASTATIN
     Indication: THYROID DISORDER
  17. EFFEXOR XR [Suspect]
     Active Substance: VENLAFAXINE HYDROCHLORIDE
     Indication: EUPHORIC MOOD
     Dosage: 75 MG, 3X/DAY
     Route: 048
     Dates: start: 20170128, end: 20170210
  18. TAMCORE [Concomitant]
     Indication: CARDIAC DISORDER
     Dosage: 200 MG, 1X/DAY
     Route: 048
  19. OPSUMIT [Concomitant]
     Active Substance: MACITENTAN
     Indication: PULMONARY HYPERTENSION
     Dosage: 10 MG, 1X/DAY
     Dates: start: 2009
  20. METOLAZONE. [Concomitant]
     Active Substance: METOLAZONE
     Indication: DIARRHOEA
     Dosage: 2.5 MG, AS NEEDED
     Dates: start: 2009

REACTIONS (5)
  - Respiratory syncytial virus infection [Recovering/Resolving]
  - Anger [Unknown]
  - Irritability [Recovered/Resolved]
  - Agitation [Unknown]
  - Pneumonia [Not Recovered/Not Resolved]

NARRATIVE: CASE EVENT DATE: 2017
